FAERS Safety Report 6610619-5 (Version None)
Quarter: 2010Q1

REPORT INFORMATION
  Report Type: 
  Country: None (occurrence: None)
  Receive Date: 20100302
  Receipt Date: 20100222
  Transmission Date: 20100710
  Serious: Yes (Other)
  Sender: FDA-Public Use
  Company Number: IT-TYCO HEALTHCARE/MALLINCKRODT-T201000672

PATIENT
  Sex: Female

DRUGS (1)
  1. OPTIRAY 350 [Suspect]
     Dosage: 125 ML, SINGLE
     Route: 042
     Dates: start: 20100218, end: 20100218

REACTIONS (6)
  - EXOPHTHALMOS [None]
  - FLUSHING [None]
  - LACRIMAL DISORDER [None]
  - PETECHIAE [None]
  - PRURITUS [None]
  - THROAT IRRITATION [None]
